FAERS Safety Report 13005127 (Version 1)
Quarter: 2016Q4

REPORT INFORMATION
  Report Type: Report from Study
  Country: None (occurrence: GB)
  Receive Date: 20161207
  Receipt Date: 20161207
  Transmission Date: 20170207
  Serious: Yes (Hospitalization)
  Sender: FDA-Public Use
  Company Number: GB-ABBVIE-16K-167-1799504-00

PATIENT
  Age: 46 Year
  Sex: Male
  Weight: 87.9 kg

DRUGS (1)
  1. HUMIRA [Suspect]
     Active Substance: ADALIMUMAB
     Indication: PSORIASIS
     Route: 058
     Dates: start: 20140630, end: 20160704

REACTIONS (4)
  - Syncope [Recovered/Resolved with Sequelae]
  - Abdominal pain upper [Recovered/Resolved with Sequelae]
  - Alcohol withdrawal syndrome [Recovered/Resolved with Sequelae]
  - Alcoholic seizure [Recovered/Resolved with Sequelae]

NARRATIVE: CASE EVENT DATE: 20160709
